FAERS Safety Report 9449240 (Version 1)
Quarter: 2013Q3

REPORT INFORMATION
  Report Type: Spontaneous
  Country: US (occurrence: US)
  Receive Date: 20130808
  Receipt Date: 20130808
  Transmission Date: 20140515
  Serious: Yes (Hospitalization)
  Sender: FDA-Public Use
  Company Number: US-GLAXOSMITHKLINE-A1036315A

PATIENT
  Sex: Male

DRUGS (16)
  1. REQUIP [Suspect]
     Indication: RESTLESS LEGS SYNDROME
     Route: 048
  2. REQUIP XL [Suspect]
     Indication: RESTLESS LEGS SYNDROME
     Dosage: 2MG PER DAY
     Route: 048
     Dates: start: 201306
  3. OXYCODONE [Concomitant]
  4. LORTAB [Concomitant]
  5. GLIMEPIRIDE [Concomitant]
  6. FUROSEMIDE [Concomitant]
  7. POTASSIUM CHLORIDE [Concomitant]
  8. DIGOXIN [Concomitant]
  9. SERTRALINE [Concomitant]
  10. METOPROLOL XL [Concomitant]
  11. METOLAZONE [Concomitant]
  12. LEVOTHYROXINE [Concomitant]
  13. INSULIN [Concomitant]
  14. NOVOLOG [Concomitant]
  15. NASONEX [Concomitant]
  16. COMBIVENT [Concomitant]

REACTIONS (7)
  - Cardiac failure congestive [Not Recovered/Not Resolved]
  - Renal cyst [Not Recovered/Not Resolved]
  - Bronchitis [Not Recovered/Not Resolved]
  - Abdominal pain upper [Not Recovered/Not Resolved]
  - Dyspnoea [Not Recovered/Not Resolved]
  - Back pain [Not Recovered/Not Resolved]
  - Drug ineffective [Not Recovered/Not Resolved]
